FAERS Safety Report 17980605 (Version 1)
Quarter: 2020Q3

REPORT INFORMATION
  Report Type: Spontaneous
  Country: ES (occurrence: ES)
  Receive Date: 20200704
  Receipt Date: 20200704
  Transmission Date: 20201103
  Serious: Yes (Other)
  Sender: FDA-Public Use
  Company Number: ES-AMGEN-ESPSP2020106381

PATIENT
  Age: 43 Year
  Sex: Female

DRUGS (2)
  1. ERENUMAB [Suspect]
     Active Substance: ERENUMAB
     Indication: MIGRAINE
     Dosage: 70 MG
     Route: 058
     Dates: start: 20200206
  2. FLUNARIZINA [FLUNARIZINE] [Concomitant]
     Indication: MIGRAINE
     Dosage: 5 MG
     Route: 048
     Dates: start: 20191128

REACTIONS (3)
  - Ingrowing nail [Not Recovered/Not Resolved]
  - Cystitis haemorrhagic [Recovered/Resolved]
  - Oral herpes [Not Recovered/Not Resolved]

NARRATIVE: CASE EVENT DATE: 20200216
